FAERS Safety Report 23689093 (Version 1)
Quarter: 2024Q1

REPORT INFORMATION
  Report Type: Report from Study
  Country: US (occurrence: US)
  Receive Date: 20240330
  Receipt Date: 20240330
  Transmission Date: 20240410
  Serious: Yes (Other)
  Sender: FDA-Public Use
  Company Number: US-ABBVIE-5694692

PATIENT
  Age: 61 Year
  Sex: Female

DRUGS (1)
  1. HUMIRA [Suspect]
     Active Substance: ADALIMUMAB
     Indication: Hidradenitis
     Route: 058
     Dates: start: 20190913

REACTIONS (3)
  - Nasal septum deviation [Recovered/Resolved]
  - Rash papular [Unknown]
  - Dry skin [Recovering/Resolving]

NARRATIVE: CASE EVENT DATE: 20240101
